FAERS Safety Report 22168785 (Version 3)
Quarter: 2023Q2

REPORT INFORMATION
  Report Type: Report from Study
  Country: US (occurrence: US)
  Receive Date: 20230403
  Receipt Date: 20230518
  Transmission Date: 20230721
  Serious: Yes (Other)
  Sender: FDA-Public Use
  Company Number: US-JAZZ PHARMACEUTICALS-2023-US-007334

PATIENT
  Sex: Female

DRUGS (1)
  1. XYWAV [Suspect]
     Active Substance: CALCIUM OXYBATE\MAGNESIUM OXYBATE\POTASSIUM OXYBATE\SODIUM OXYBATE
     Indication: Hypersomnia
     Dosage: 4.5 GRAM, BID

REACTIONS (6)
  - Ankylosing spondylitis [Unknown]
  - Narcolepsy [Unknown]
  - Gastrooesophageal reflux disease [Unknown]
  - Intervertebral disc degeneration [Unknown]
  - Depression [Unknown]
  - Hypertension [Unknown]
